FAERS Safety Report 21414423 (Version 1)
Quarter: 2022Q4

REPORT INFORMATION
  Report Type: Spontaneous
  Country: DE (occurrence: DE)
  Receive Date: 20221006
  Receipt Date: 20221006
  Transmission Date: 20230113
  Serious: Yes (Life-Threatening, Hospitalization, Other)
  Sender: FDA-Public Use
  Company Number: DE-EMA-20110413-mgevhumanwt-171236583

PATIENT
  Age: 62 Year
  Sex: Male

DRUGS (63)
  1. OMEPRAZOLE [Suspect]
     Active Substance: OMEPRAZOLE
     Indication: Prophylaxis against gastrointestinal ulcer
     Dosage: 20 MILLIGRAM, ONCE A DAY
     Route: 065
     Dates: start: 20050719
  2. OMEPRAZOLE [Suspect]
     Active Substance: OMEPRAZOLE
     Dosage: 20 MILLIGRAM, ONCE A DAY
     Route: 065
     Dates: start: 20050719
  3. MOXIFLOXACIN HYDROCHLORIDE [Suspect]
     Active Substance: MOXIFLOXACIN HYDROCHLORIDE
     Indication: Infective exacerbation of chronic obstructive airways disease
     Dosage: 400 MILLIGRAM, ONCE A DAY
     Route: 048
     Dates: start: 20050627, end: 20050703
  4. CALCIUM\VITAMIN D [Suspect]
     Active Substance: CALCIUM\VITAMIN D
     Indication: Osteoporosis
     Dosage: 1000 MILLIGRAM, ONCE A DAY
     Route: 065
     Dates: start: 20050715, end: 20050718
  5. NORVASC [Suspect]
     Active Substance: AMLODIPINE BESYLATE
     Indication: Cardiovascular disorder
     Dosage: 5 MILLIGRAM ONCE A DAY
     Route: 065
     Dates: start: 20050704
  6. ISOPTIN [Suspect]
     Active Substance: VERAPAMIL HYDROCHLORIDE
     Indication: Atrial fibrillation
     Dosage: 80 MILLIGRAM, ONCE A DAY
     Route: 065
     Dates: start: 20050709
  7. ACETYLCYSTEINE [Suspect]
     Active Substance: ACETYLCYSTEINE
     Indication: Productive cough
     Dosage: 600 MILLIGRAM ONCE A DAY
     Route: 065
     Dates: start: 20050629, end: 20050712
  8. PHENPROCOUMON [Suspect]
     Active Substance: PHENPROCOUMON
     Indication: Atrial fibrillation
     Dosage: UNK
     Route: 065
     Dates: start: 20050710
  9. FORADIL [Suspect]
     Active Substance: FORMOTEROL FUMARATE
     Indication: Chronic obstructive pulmonary disease
     Dosage: 2 DOSAGE FORM, ONCE A DAY(DAILY DOSE: 2 DF DOSAGE FORM EVERY DAY)
     Route: 065
     Dates: start: 20050629, end: 20050718
  10. FORADIL [Suspect]
     Active Substance: FORMOTEROL FUMARATE
     Dosage: 2 DOSAGE FORM, ONCE A DAY
     Route: 065
  11. OMEPRAZOLE [Suspect]
     Active Substance: OMEPRAZOLE
     Indication: Prophylaxis
     Dosage: 20 MILLIGRAM, ONCE A DAY
     Route: 065
     Dates: start: 20050718
  12. OMEPRAZOLE [Suspect]
     Active Substance: OMEPRAZOLE
     Dosage: 20 MILLIGRAM, ONCE A DAY
     Route: 065
     Dates: start: 20050719
  13. CITRIC ACID MONOHYDRATE\POTASSIUM BICARBONATE\POTASSIUM CITRATE [Suspect]
     Active Substance: CITRIC ACID MONOHYDRATE\POTASSIUM BICARBONATE\POTASSIUM CITRATE
     Indication: Hypokalaemia
     Dosage: 1 DOSAGE FORM, ONCE A DAY
     Route: 065
     Dates: start: 20050704, end: 20050713
  14. OXAZEPAM [Suspect]
     Active Substance: OXAZEPAM
     Indication: Sedation
     Dosage: UNK, NOT STATED
     Route: 065
     Dates: start: 20050708, end: 20050708
  15. CLOMETHIAZOLE [Suspect]
     Active Substance: CLOMETHIAZOLE
     Indication: Alcohol withdrawal syndrome
     Dosage: 6 DOSAGE FORM, ONCE A DAY
     Route: 065
     Dates: start: 20050630, end: 20050703
  16. PREDNISONE [Suspect]
     Active Substance: PREDNISONE
     Indication: Product used for unknown indication
     Dosage: 100 MILLIGRAM, ONCE A DAY
     Route: 065
  17. CHOLECALCIFEROL [Suspect]
     Active Substance: CHOLECALCIFEROL
     Indication: Osteoporosis
     Dosage: 1000 INTERNATIONAL UNIT, ONCE A DAY
     Route: 048
     Dates: start: 20050718, end: 20050718
  18. CHOLECALCIFEROL [Suspect]
     Active Substance: CHOLECALCIFEROL
     Dosage: 1000 INTERNATIONAL UNIT
     Route: 048
     Dates: start: 20050717, end: 20050717
  19. HYDROCHLOROTHIAZIDE\RAMIPRIL [Suspect]
     Active Substance: HYDROCHLOROTHIAZIDE\RAMIPRIL
     Indication: Cardiovascular disorder
     Dosage: 1 DOSAGE FORM, ONCE A DAY
     Route: 065
     Dates: start: 20050703
  20. PANTOPRAZOLE [Suspect]
     Active Substance: PANTOPRAZOLE
     Indication: Prophylaxis against gastrointestinal ulcer
     Dosage: 40 MILLIGRAM, ONCE A DAY
     Route: 048
     Dates: start: 20050703, end: 20050718
  21. PANTOPRAZOLE [Suspect]
     Active Substance: PANTOPRAZOLE
     Dosage: 40 MILLIGRAM, DAILY
     Route: 048
     Dates: start: 20050629, end: 20050630
  22. BEROTEC [Suspect]
     Active Substance: FENOTEROL HYDROBROMIDE
     Indication: Chronic obstructive pulmonary disease
     Dosage: 6 DOSAGE FORM, EVERY WEEK(DOSAGE REGIMEN: 2-3X/WO)
     Route: 065
     Dates: start: 20040601
  23. BEROTEC [Suspect]
     Active Substance: FENOTEROL HYDROBROMIDE
     Dosage: UNK, TIW
     Route: 065
     Dates: start: 20040601
  24. FLUTICASONE PROPIONATE\SALMETEROL XINAFOATE [Suspect]
     Active Substance: FLUTICASONE PROPIONATE\SALMETEROL XINAFOATE
     Indication: Chronic obstructive pulmonary disease
     Dosage: DOSAGE REGIMEN: 1-0-1
     Dates: start: 20050718
  25. FLUTICASONE PROPIONATE\SALMETEROL XINAFOATE [Suspect]
     Active Substance: FLUTICASONE PROPIONATE\SALMETEROL XINAFOATE
     Dosage: UNK
     Route: 065
  26. VERAPAMIL HYDROCHLORIDE [Suspect]
     Active Substance: VERAPAMIL HYDROCHLORIDE
     Indication: Atrial fibrillation
     Dosage: 240 MILLIGRAM, ONCE A DAY
     Route: 065
     Dates: start: 20050718
  27. MARCUMAR [Suspect]
     Active Substance: PHENPROCOUMON
     Indication: Atrial fibrillation
     Dosage: UNK, ACCORDING INR
     Route: 065
     Dates: start: 20050710
  28. HEPARIN SODIUM [Suspect]
     Active Substance: HEPARIN SODIUM
     Indication: Thrombosis prophylaxis
     Dosage: 25000 INTERNATIONAL UNIT, ONCE A DAY
     Route: 065
     Dates: start: 20050627, end: 20050709
  29. INSULIN NOS [Suspect]
     Active Substance: INSULIN NOS
     Indication: Blood glucose abnormal
     Dosage: UNK
     Route: 065
     Dates: start: 20050703, end: 20050703
  30. CLORAZEPATE DIPOTASSIUM [Suspect]
     Active Substance: CLORAZEPATE DIPOTASSIUM
     Indication: Sedation
     Dosage: 5 MILLIGRAM(DOSAGE REGIMEN: 1-1-1-2)
     Route: 065
     Dates: start: 20050627, end: 20050702
  31. CLORAZEPATE DIPOTASSIUM [Suspect]
     Active Substance: CLORAZEPATE DIPOTASSIUM
     Dosage: 10 MILLIGRAM, AT BED TIME
     Route: 048
  32. NITROGLYCERIN [Suspect]
     Active Substance: NITROGLYCERIN
     Indication: Hypertension
     Dosage: 50 MILLIGRAMDOSAGE(REGIMEN: 0-0)
     Route: 065
     Dates: start: 20050702, end: 20050702
  33. DIGITOXIN [Suspect]
     Active Substance: DIGITOXIN
     Indication: Coronary artery disease
     Dosage: 0.1 MILLIGRAM, ONCE A DAY(DAILY DOSE: 0.1 MG MILLIGRAM(S) EVERY DAY)
     Route: 065
     Dates: start: 20050708
  34. CALCIUM CARBONATE\CHOLECALCIFEROL [Suspect]
     Active Substance: CALCIUM CARBONATE\CHOLECALCIFEROL
     Indication: Product used for unknown indication
     Dosage: 2 DOSAGE FORM, ONCE A DAY(2 DF)
     Route: 048
     Dates: start: 20050719
  35. CALCIUM CARBONATE\CHOLECALCIFEROL [Suspect]
     Active Substance: CALCIUM CARBONATE\CHOLECALCIFEROL
     Dosage: DOSAGE REGIMEN: 1-0-1
     Route: 048
     Dates: start: 20050718
  36. BRICANYL [Suspect]
     Active Substance: TERBUTALINE SULFATE
     Indication: Dyspnoea
     Dosage: 2 DOSAGE FORM, ONCE A DAY(DOSAGE REGIMEN: 1/2-0-1/2)
     Route: 065
     Dates: start: 20050627, end: 20050709
  37. AMBROXOL [Suspect]
     Active Substance: AMBROXOL
     Indication: Unevaluable event
     Dosage: 28 GTT DROPS, ONCE A DAY(DAILY DOSE: 28 GTT DROP(S) EVERY DAY)
     Route: 065
     Dates: start: 20050701, end: 20050718
  38. BECLOMETHASONE DIPROPIONATE [Suspect]
     Active Substance: BECLOMETHASONE DIPROPIONATE
     Indication: Chronic obstructive pulmonary disease
     Dosage: 2 DOSAGE FORM, ONCE A DAY(DAILY DOSE: 2 DF DOSAGE FORM EVERY DAY)
     Route: 065
     Dates: start: 20050627, end: 20050715
  39. BECLOMETHASONE DIPROPIONATE [Suspect]
     Active Substance: BECLOMETHASONE DIPROPIONATE
     Dosage: 2 DOSAGE FORM, DAILY(2 DF, QD)
     Route: 065
  40. PREDNISOLONE [Suspect]
     Active Substance: PREDNISOLONE
     Indication: Chronic obstructive pulmonary disease
     Dosage: 15 MILLIGRAM(DOSAGE REGIMEN: 1-0-0, 100 MG 1-0-0)
     Route: 048
     Dates: start: 20050716, end: 20050718
  41. PREDNISOLONE [Suspect]
     Active Substance: PREDNISOLONE
     Dosage: 15 MILLIGRAM
     Route: 048
     Dates: start: 20050716, end: 20050718
  42. FUROSEMIDE [Suspect]
     Active Substance: FUROSEMIDE
     Indication: Hypertension
     Dosage: 40 MILLIGRAM, ONCE A DAY
     Route: 065
     Dates: start: 20050707
  43. PREDNISOLONE [Suspect]
     Active Substance: PREDNISOLONE
     Indication: Chronic obstructive pulmonary disease
     Dosage: 280 MILLIGRAM, ONCE A DAY(DOSAGE REGIMEN: 50 MG 0-0, 280 MG-0-0, 20 MG-0-0, 5 MG 1-2-3)
     Route: 065
     Dates: start: 20050630, end: 20050705
  44. PREDNISOLONE [Suspect]
     Active Substance: PREDNISOLONE
     Dosage: 80 MILLIGRAM
     Route: 048
     Dates: start: 20050707, end: 20050715
  45. PREDNISOLONE [Suspect]
     Active Substance: PREDNISOLONE
     Dosage: 100 MILLIGRAM, ONCE A DAY(100 MG, QD)
     Route: 048
  46. PREDNISOLONE [Suspect]
     Active Substance: PREDNISOLONE
     Dosage: 50 MILLIGRAM, ONCE A DAY(DOSAGE TEXT:~50 MG, QD )
     Route: 048
     Dates: start: 20050719
  47. PREDNISOLONE [Suspect]
     Active Substance: PREDNISOLONE
     Dosage: 15 MILLIGRAM, ONCE A DAY(15 MG, QD)
     Route: 048
     Dates: start: 20050716, end: 20050718
  48. PREDNISOLONE [Suspect]
     Active Substance: PREDNISOLONE
     Dosage: 20 MILLIGRAM
     Route: 048
     Dates: start: 20050628, end: 20050705
  49. PREDNISOLONE [Suspect]
     Active Substance: PREDNISOLONE
     Dosage: 15 MILLIGRAM(DOSAGE REGIMEN: 1-0-0, 100 MG 1-0-0)
     Route: 048
     Dates: start: 20050716, end: 20050718
  50. PREDNISOLONE [Suspect]
     Active Substance: PREDNISOLONE
     Dosage: 5 MILLIGRAM(5 MG, UNK)
     Route: 048
     Dates: start: 20050719
  51. SPIRIVA [Suspect]
     Active Substance: TIOTROPIUM BROMIDE MONOHYDRATE
     Indication: Chronic obstructive pulmonary disease
     Dosage: 1 DOSAGE FORM, ONCE A DAY(DOSAGE REGIMEN: 1-0-0)
     Dates: start: 20040601
  52. SPIRIVA [Suspect]
     Active Substance: TIOTROPIUM BROMIDE MONOHYDRATE
     Dosage: 1 DOSAGE FORM, ONCE A DAY(DOSAGE REGIMEN: 1-0-0 )
  53. THEOPHYLLINE ANHYDROUS [Suspect]
     Active Substance: THEOPHYLLINE ANHYDROUS
     Indication: Chronic obstructive pulmonary disease
     Dosage: 200 MILLIGRAM, ONCE A DAY(ROUTE: INTRAVENOUS. DOSAGE REGIMEN: 3-0-0, 1-0-0)
     Route: 042
     Dates: start: 20050627, end: 20050630
  54. THEOPHYLLINE ANHYDROUS [Suspect]
     Active Substance: THEOPHYLLINE ANHYDROUS
     Dosage: 200 MILLIGRAM
     Route: 042
     Dates: start: 20050721, end: 20050721
  55. THEOPHYLLINE ANHYDROUS [Suspect]
     Active Substance: THEOPHYLLINE ANHYDROUS
     Dosage: 200 MILLIGRAM
     Route: 042
     Dates: start: 20050718, end: 20050718
  56. THEOPHYLLINE ANHYDROUS [Suspect]
     Active Substance: THEOPHYLLINE ANHYDROUS
     Dosage: 600 MILLIGRAM(ROUTE: ORAL, DOSAGE REGIMEN:1-0-0 )
     Route: 042
     Dates: start: 20050704, end: 20050709
  57. CLONIDINE [Suspect]
     Active Substance: CLONIDINE
     Indication: Alcohol withdrawal syndrome
     Dosage: 1.5 MILLIGRAM, ONCE A DAY(DOSAGE REGIMEN: 1-0-0)
     Dates: start: 20050628, end: 20050630
  58. CLONIDINE [Suspect]
     Active Substance: CLONIDINE
     Dosage: 1.5 MILLIGRAM, ONCE A DAY(1.5 MG, QD)
     Route: 042
     Dates: start: 20050703, end: 20050704
  59. RINGERLOESUNG [Concomitant]
     Indication: Product used for unknown indication
     Dosage: 1000 MILLILITER(DRUG NAME: RINGER LSG. DOSAGE REGIMEN: 1-0-0)
     Route: 065
     Dates: start: 20050627, end: 20050703
  60. HALOPERIDOL [Concomitant]
     Active Substance: HALOPERIDOL
     Indication: Sedation
     Dosage: 10 GTT DROPS, ONCE A DAY(10 GTT, QD)
     Route: 048
     Dates: start: 20050703
  61. HALOPERIDOL [Concomitant]
     Active Substance: HALOPERIDOL
     Dosage: UNK, DRUG NAME: HALOPERIDOL TROPFEN. DOSAGE REGIMEN: 10-0-0
     Route: 048
     Dates: start: 20050629, end: 20050630
  62. FRUCTOSE\INSULIN BEEF [Concomitant]
     Active Substance: FRUCTOSE\INSULIN BEEF
     Indication: Product used for unknown indication
     Dosage: UNK
     Route: 065
     Dates: start: 20050703, end: 20050703
  63. Delix [Concomitant]
     Indication: Cardiovascular disorder
     Dosage: DOSAGE REGIMEN: 1-0-0
     Route: 065
     Dates: start: 20050630, end: 20050702

REACTIONS (6)
  - Pruritus [Unknown]
  - Blister [Unknown]
  - Nikolsky^s sign [Unknown]
  - Toxic epidermal necrolysis [Recovered/Resolved]
  - Pyrexia [Unknown]
  - Stevens-Johnson syndrome [Recovered/Resolved]

NARRATIVE: CASE EVENT DATE: 20050721
